FAERS Safety Report 13468605 (Version 1)
Quarter: 2017Q2

REPORT INFORMATION
  Report Type: Spontaneous
  Country: US (occurrence: US)
  Receive Date: 20170421
  Receipt Date: 20170421
  Transmission Date: 20170830
  Serious: No
  Sender: FDA-Public Use
  Company Number: US-PFIZER INC-3185162

PATIENT
  Sex: Male

DRUGS (1)
  1. SODIUM ACETATE. [Suspect]
     Active Substance: SODIUM ACETATE
     Indication: PRODUCT USED FOR UNKNOWN INDICATION
     Dosage: UNK

REACTIONS (3)
  - Product container issue [Unknown]
  - Accident at work [Unknown]
  - Laceration [Unknown]

NARRATIVE: CASE EVENT DATE: 20160222
